FAERS Safety Report 9752393 (Version 1)
Quarter: 2013Q4

REPORT INFORMATION
  Report Type: Spontaneous
  Country: US (occurrence: US)
  Receive Date: 20131213
  Receipt Date: 20131213
  Transmission Date: 20140711
  Serious: No
  Sender: FDA-Public Use
  Company Number: US-PFIZER INC-2013356333

PATIENT
  Age: 65 Year
  Sex: Female
  Weight: 68.03 kg

DRUGS (2)
  1. GABAPENTIN [Suspect]
     Indication: NEURALGIA
     Dosage: UNK
  2. TRIAMTERENE [Concomitant]
     Dosage: UNK

REACTIONS (3)
  - Off label use [Unknown]
  - Local swelling [Unknown]
  - Drug ineffective for unapproved indication [Unknown]
